FAERS Safety Report 5817777-0 (Version None)
Quarter: 2008Q3

REPORT INFORMATION
  Report Type: 
  Country: None (occurrence: None)
  Receive Date: 20080716
  Receipt Date: 20080702
  Transmission Date: 20090109
  Serious: Yes (Other)
  Sender: FDA-Public Use
  Company Number: 2008S1011719

PATIENT
  Sex: 0

DRUGS (2)
  1. SERTRALINE [Suspect]
     Indication: DEPRESSION
     Dosage: 50 MG; DAILY, TRANSPLACENTAL
     Route: 064
     Dates: start: 20080521
  2. SOLPADOL (PANADEINE CO) [Concomitant]

REACTIONS (2)
  - CONGENITAL PULMONARY HYPERTENSION [None]
  - MATERNAL DRUGS AFFECTING FOETUS [None]
